FAERS Safety Report 8826198 (Version 3)
Quarter: 2012Q4

REPORT INFORMATION
  Report Type: Report from Study
  Country: DE (occurrence: DE)
  Receive Date: 20121005
  Receipt Date: 20121128
  Transmission Date: 20130627
  Serious: Yes (Death)
  Sender: FDA-Public Use
  Company Number: DE-ROCHE-1139938

PATIENT
  Age: 55 Year
  Sex: Male
  Weight: 98.5 kg

DRUGS (11)
  1. METHOXY POLYETHYLENE GLYCOL-EPOETIN BETA [Suspect]
     Indication: PRODUCT USED FOR UNKNOWN INDICATION
     Route: 042
     Dates: start: 20110119
  2. FERRIC SODIUM GLUCONATE/SUCROSE [Suspect]
     Indication: PRODUCT USED FOR UNKNOWN INDICATION
     Route: 065
  3. VITAMIN B12 [Concomitant]
     Route: 065
     Dates: start: 20070509
  4. DEKRISTOL [Concomitant]
     Route: 065
     Dates: start: 20090318
  5. VITAMIN C [Concomitant]
     Route: 065
     Dates: start: 20101201
  6. FUROSEMIDE [Concomitant]
     Dosage: 1/2-0.0
     Route: 065
  7. ATACAND [Concomitant]
     Dosage: 0.1-0
     Route: 065
     Dates: start: 20060920
  8. AMLODIPIN [Concomitant]
     Dosage: 1/2-0-1/2
     Route: 065
     Dates: start: 20080507
  9. BISOPROLOL [Concomitant]
     Dosage: 1/2-0-0
     Route: 065
     Dates: start: 20070122
  10. ASS [Concomitant]
     Dosage: 1-0-0
     Route: 065
     Dates: start: 20070122
  11. XIPAMID [Concomitant]
     Dosage: 1/2-0-0
     Route: 065
     Dates: start: 20070314

REACTIONS (2)
  - Sepsis [Fatal]
  - Brain abscess [Fatal]
